FAERS Safety Report 25876362 (Version 1)
Quarter: 2025Q4

REPORT INFORMATION
  Report Type: Report from Study
  Country: CA (occurrence: CA)
  Receive Date: 20251003
  Receipt Date: 20251003
  Transmission Date: 20260118
  Serious: Yes (Other)
  Sender: CELLTRION
  Company Number: CA-CELLTRION INC.-2024CA007744

PATIENT

DRUGS (3)
  1. ADALIMUMAB-AATY [Suspect]
     Active Substance: ADALIMUMAB-AATY
     Indication: Crohn^s disease
     Dosage: 40MG EVERY 2 WEEKS
     Route: 058
     Dates: start: 20240307
  2. ADALIMUMAB-AATY [Suspect]
     Active Substance: ADALIMUMAB-AATY
     Dosage: 40MG EVERY 2 WEEKS
     Route: 058
     Dates: start: 20250828
  3. ADALIMUMAB-AATY [Suspect]
     Active Substance: ADALIMUMAB-AATY
     Dosage: 40MG EVERY 2 WEEKS
     Route: 058
     Dates: start: 20250926

REACTIONS (5)
  - Blepharoplasty [Unknown]
  - Pneumonia [Recovering/Resolving]
  - Intentional dose omission [Recovering/Resolving]
  - Inappropriate schedule of product administration [Recovering/Resolving]
  - Weight decreased [Unknown]

NARRATIVE: CASE EVENT DATE: 20240324
